FAERS Safety Report 8914125 (Version 3)
Quarter: 2013Q4

REPORT INFORMATION
  Report Type: Spontaneous
  Country: US (occurrence: None)
  Receive Date: 20121114
  Receipt Date: 20131107
  Transmission Date: 20140711
  Serious: Yes (Hospitalization)
  Sender: FDA-Public Use
  Company Number: CIO12022011

PATIENT
  Age: 75 Year
  Sex: Female
  Weight: 77.6 kg

DRUGS (2)
  1. VAPORUB AND COUGH SUPPRESSANT [Suspect]
     Indication: NASOPHARYNGITIS
     Route: 048
  2. MINERAL OIL EMULSION [Suspect]
     Indication: LAXATIVE SUPPORTIVE CARE
     Route: 048

REACTIONS (10)
  - Pneumonia lipoid [None]
  - Lung disorder [None]
  - Drug administered at inappropriate site [None]
  - Incorrect route of drug administration [None]
  - Off label use [None]
  - Bronchitis chronic [None]
  - Malaise [None]
  - Cardiac disorder [None]
  - Bone disorder [None]
  - Gastric disorder [None]
